FAERS Safety Report 6470209-4 (Version None)
Quarter: 2009Q4

REPORT INFORMATION
  Report Type: 
  Country: None (occurrence: None)
  Receive Date: 20091203
  Receipt Date: 20071203
  Transmission Date: 20100525
  Serious: Yes (Hospitalization, Other)
  Sender: FDA-Public Use
  Company Number: US-ELI_LILLY_AND_COMPANY-US200711004448

PATIENT
  Sex: Female

DRUGS (1)
  1. HUMATROPE [Suspect]
     Indication: GROWTH HORMONE DEFICIENCY
     Dosage: UNK, UNKNOWN
     Dates: start: 20040101

REACTIONS (6)
  - PARKINSON'S DISEASE [None]
  - PSEUDOMONAS INFECTION [None]
  - RESPIRATORY TRACT INFECTION [None]
  - SEPSIS [None]
  - URINARY TRACT INFECTION [None]
  - VOCAL CORD PARALYSIS [None]
